FAERS Safety Report 13678591 (Version 1)
Quarter: 2017Q2

REPORT INFORMATION
  Report Type: Spontaneous
  Country: US (occurrence: US)
  Receive Date: 20170622
  Receipt Date: 20170622
  Transmission Date: 20170830
  Serious: Yes (Other)
  Sender: FDA-Public Use
  Company Number: US-DSJP-DSU-2017-118727

PATIENT

DRUGS (2)
  1. SAVAYSA [Suspect]
     Active Substance: EDOXABAN TOSYLATE
     Dosage: 60 MG PILLS IN HALF,UNK
  2. SAVAYSA [Suspect]
     Active Substance: EDOXABAN TOSYLATE
     Indication: PRODUCT USED FOR UNKNOWN INDICATION
     Dosage: 60 MG, UNK
     Dates: start: 2015

REACTIONS (4)
  - Haemorrhage [Unknown]
  - Haematochezia [Recovered/Resolved]
  - Drug administration error [Unknown]
  - Cardiac pacemaker insertion [Unknown]

NARRATIVE: CASE EVENT DATE: 20170506
